FAERS Safety Report 13674304 (Version 2)
Quarter: 2017Q2

REPORT INFORMATION
  Report Type: Report from Study
  Country: CO (occurrence: CO)
  Receive Date: 20170621
  Receipt Date: 20170627
  Transmission Date: 20170830
  Serious: Yes (Death, Hospitalization, Other)
  Sender: FDA-Public Use
  Company Number: PHHY2017CO090690

PATIENT
  Age: 49 Year
  Sex: Female
  Weight: 50 kg

DRUGS (1)
  1. AFINITOR [Suspect]
     Active Substance: EVEROLIMUS
     Indication: BREAST CANCER
     Dosage: 10 MG, QD
     Route: 048
     Dates: start: 20170101

REACTIONS (8)
  - Cardiac arrest [Fatal]
  - Malaise [Unknown]
  - Hepatic failure [Unknown]
  - Inflammation [Unknown]
  - Nausea [Unknown]
  - Eating disorder [Unknown]
  - Vomiting [Unknown]
  - Pain [Unknown]

NARRATIVE: CASE EVENT DATE: 20170522
